FAERS Safety Report 7902927-2 (Version None)
Quarter: 2011Q4

REPORT INFORMATION
  Report Type: 
  Country: None (occurrence: None)
  Receive Date: 20111109
  Receipt Date: 20111031
  Transmission Date: 20120403
  Serious: Yes (Other)
  Sender: FDA-Public Use
  Company Number: US-JNJFOC-20111101155

PATIENT
  Sex: Male

DRUGS (1)
  1. RISPERDAL [Suspect]
     Indication: PRODUCT USED FOR UNKNOWN INDICATION
     Route: 065

REACTIONS (16)
  - POLYARTHRITIS [None]
  - DEPRESSION [None]
  - EYE INFECTION [None]
  - TYPE 2 DIABETES MELLITUS [None]
  - SEXUAL DYSFUNCTION [None]
  - LIVER DISORDER [None]
  - BLOOD CHOLESTEROL INCREASED [None]
  - DRUG PRESCRIBING ERROR [None]
  - WEIGHT INCREASED [None]
  - CARDIOMEGALY [None]
  - INFECTION [None]
  - NERVE INJURY [None]
  - ADVERSE EVENT [None]
  - DIABETIC COMPLICATION [None]
  - SLEEP APNOEA SYNDROME [None]
  - HYPERTENSION [None]
